FAERS Safety Report 9735889 (Version 3)
Quarter: 2015Q3

REPORT INFORMATION
  Report Type: Spontaneous
  Country: US (occurrence: US)
  Receive Date: 20131206
  Receipt Date: 20150804
  Transmission Date: 20151125
  Serious: No
  Sender: FDA-Public Use
  Company Number: US-GILEAD-2009-0023701

PATIENT
  Age: 47 Year
  Sex: Female
  Weight: 93.44 kg

DRUGS (10)
  1. VENTAVIS [Concomitant]
     Active Substance: ILOPROST
  2. PERCOCET [Concomitant]
     Active Substance: ACETAMINOPHEN\OXYCODONE HYDROCHLORIDE
  3. REVATIO [Concomitant]
     Active Substance: SILDENAFIL CITRATE
  4. OXYGEN. [Concomitant]
     Active Substance: OXYGEN
  5. TORSEMIDE. [Concomitant]
     Active Substance: TORSEMIDE
  6. K-DUR [Concomitant]
     Active Substance: POTASSIUM CHLORIDE
  7. LIMBREL [Concomitant]
     Active Substance: FLAVOCOXID
  8. PARACETAMOL/HYDROCODONE BITARTRATE [Concomitant]
  9. COUMADIN [Concomitant]
     Active Substance: WARFARIN SODIUM
  10. LETAIRIS [Suspect]
     Active Substance: AMBRISENTAN
     Indication: PULMONARY ARTERIAL HYPERTENSION
     Route: 048
     Dates: start: 20090623

REACTIONS (1)
  - Unevaluable event [Unknown]
